FAERS Safety Report 9263739 (Version 1)
Quarter: 2013Q2

REPORT INFORMATION
  Report Type: Spontaneous
  Country: US (occurrence: None)
  Receive Date: 20130429
  Receipt Date: 20130429
  Transmission Date: 20140414
  Serious: No
  Sender: FDA-Public Use
  Company Number: None

PATIENT
  Age: 49 Year
  Sex: Female
  Weight: 54.43 kg

DRUGS (1)
  1. TRIMETHOPRIM [Suspect]
     Indication: URINARY TRACT INFECTION
     Dosage: TOOK ONE PILL
     Route: 048
     Dates: start: 20130427, end: 20130427

REACTIONS (6)
  - Vulvovaginal burning sensation [None]
  - Vulvovaginal discomfort [None]
  - Ocular hyperaemia [None]
  - Eye discharge [None]
  - Oropharyngeal pain [None]
  - Malaise [None]
